FAERS Safety Report 4516387-5 (Version None)
Quarter: 2004Q4

REPORT INFORMATION
  Report Type: 
  Country: None (occurrence: None)
  Receive Date: 20041202
  Receipt Date: 20040803
  Transmission Date: 20050328
  Serious: No
  Sender: FDA-Public Use
  Company Number: US-GLAXOSMITHKLINE-A0520915A

PATIENT
  Age: 1 Year
  Sex: Male
  Weight: 11.4 kg

DRUGS (1)
  1. AUGMENTIN ES-600 [Suspect]
     Indication: OTITIS MEDIA ACUTE
     Dosage: 5ML TWICE PER DAY
     Route: 048
     Dates: start: 20040322

REACTIONS (1)
  - TOOTH DISCOLOURATION [None]
